FAERS Safety Report 4304534-X (Version None)
Quarter: 2004Q1

REPORT INFORMATION
  Report Type: 
  Country: None (occurrence: None)
  Receive Date: 20040224
  Receipt Date: 20040218
  Transmission Date: 20041129
  Serious: Yes (Other)
  Sender: FDA-Public Use
  Company Number: CZ-JNJFOC-20040203911

PATIENT
  Age: 24 Year
  Sex: Male

DRUGS (5)
  1. REMICADE [Suspect]
     Indication: RHEUMATOID ARTHRITIS
     Dosage: 100 MG, INTRAVENOUS
     Route: 042
     Dates: start: 20020605
  2. METHOTREXATE [Concomitant]
  3. PREDNISONE [Concomitant]
  4. IBRUPROFEN (IBUPROFEN) [Concomitant]
  5. FOLICUM (FOLIC ACID) [Concomitant]

REACTIONS (3)
  - PROTEINURIA [None]
  - RED BLOOD CELL COUNT INCREASED [None]
  - WHITE BLOOD CELL COUNT DECREASED [None]
